FAERS Safety Report 13538978 (Version 1)
Quarter: 2017Q2

REPORT INFORMATION
  Report Type: Spontaneous
  Country: US (occurrence: US)
  Receive Date: 20170511
  Receipt Date: 20170511
  Transmission Date: 20170830
  Serious: No
  Sender: FDA-Public Use
  Company Number: None

PATIENT
  Age: 49 Year
  Sex: Male

DRUGS (1)
  1. COSENTYX [Suspect]
     Active Substance: SECUKINUMAB
     Indication: PRODUCT USED FOR UNKNOWN INDICATION
     Dosage: 300 MG Q28D SQ
     Route: 058
     Dates: start: 20110830

REACTIONS (2)
  - Pharyngeal operation [None]
  - Therapy cessation [None]

NARRATIVE: CASE EVENT DATE: 20170412
